FAERS Safety Report 14364670 (Version 1)
Quarter: 2018Q1

REPORT INFORMATION
  Report Type: Spontaneous
  Country: US (occurrence: US)
  Receive Date: 20180106
  Receipt Date: 20180106
  Transmission Date: 20180509
  Serious: Yes (Other)
  Sender: FDA-Public Use
  Company Number: None

PATIENT
  Age: 10 Day
  Sex: Female

DRUGS (3)
  1. REQUIP XL [Concomitant]
     Active Substance: ROPINIROLE HYDROCHLORIDE
  2. AZILECT [Concomitant]
     Active Substance: RASAGILINE MESYLATE
  3. STALEVO [Suspect]
     Active Substance: CARBIDOPA\ENTACAPONE\LEVODOPA
     Indication: PARKINSON^S DISEASE
     Dosage: 100 MG 5 TIMES DAILY; ORAL?
     Route: 048

REACTIONS (2)
  - Drug ineffective [None]
  - Paralysis [None]

NARRATIVE: CASE EVENT DATE: 20180101
